FAERS Safety Report 9760424 (Version 2)
Quarter: 2013Q4

REPORT INFORMATION
  Report Type: Spontaneous
  Country: US (occurrence: US)
  Receive Date: 20131216
  Receipt Date: 20131226
  Transmission Date: 20140711
  Serious: No
  Sender: FDA-Public Use
  Company Number: US-PFIZER INC-2013358474

PATIENT
  Age: 83 Year
  Sex: Male
  Weight: 90.7 kg

DRUGS (5)
  1. CELEBREX [Suspect]
     Indication: ARTHRALGIA
     Dosage: 200 MG, 1X/DAY
     Dates: start: 2013
  2. CELEBREX [Suspect]
     Indication: BACK PAIN
  3. PERCOCET [Suspect]
     Indication: ARTHRALGIA
     Dosage: PARACETAMOL 325MG / OXYCODONE 5 MG, 1DF, 1X/DAY
     Dates: start: 2013
  4. PERCOCET [Suspect]
     Indication: BACK PAIN
  5. GABAPENTIN [Concomitant]
     Indication: NEUROPATHY PERIPHERAL
     Dosage: 200 MG, 3X/DAY

REACTIONS (4)
  - Intentional drug misuse [Unknown]
  - Expired drug administered [Unknown]
  - Pain [Unknown]
  - Drug ineffective [Unknown]
